FAERS Safety Report 6273512-6 (Version None)
Quarter: 2009Q3

REPORT INFORMATION
  Report Type: 
  Country: None (occurrence: None)
  Receive Date: 20090716
  Receipt Date: 20090709
  Transmission Date: 20100115
  Serious: Yes (Hospitalization)
  Sender: FDA-Public Use
  Company Number: TCI2009A02274

PATIENT
  Age: 66 Year
  Sex: Female

DRUGS (1)
  1. LANSOPRAZOLE [Suspect]
     Indication: DYSPEPSIA
     Dosage: 15 MG (15 MG, 1 D)
     Route: 048
     Dates: start: 20070901

REACTIONS (8)
  - ABDOMINAL PAIN LOWER [None]
  - BIOPSY COLON ABNORMAL [None]
  - COLITIS COLLAGENOUS [None]
  - DIARRHOEA [None]
  - HYPOPROTEINAEMIA [None]
  - LARGE INTESTINAL ULCER [None]
  - MELAENA [None]
  - OEDEMA PERIPHERAL [None]
